FAERS Safety Report 6039380-2 (Version None)
Quarter: 2009Q1

REPORT INFORMATION
  Report Type: 
  Country: None (occurrence: None)
  Receive Date: 20090114
  Receipt Date: 20090102
  Transmission Date: 20090719
  Serious: Yes (Other)
  Sender: FDA-Public Use
  Company Number: 2009AL000105

PATIENT
  Age: 55 Year
  Sex: Male

DRUGS (4)
  1. TRAMADOL HYDROCHLORIDE [Suspect]
  2. DIAZEPAM [Suspect]
  3. FENTANYL TRANSDERMAL SYSTEM,  (ASALLC) [Suspect]
     Indication: OSTEOARTHRITIS
     Dosage: 75 MCG; TDER
     Route: 062
     Dates: end: 20080819
  4. PREGABALIN [Concomitant]

REACTIONS (2)
  - DRUG INTERACTION [None]
  - RESPIRATORY FAILURE [None]
